FAERS Safety Report 6603840-3 (Version None)
Quarter: 2010Q1

REPORT INFORMATION
  Report Type: 
  Country: None (occurrence: None)
  Receive Date: 20100226
  Receipt Date: 20090217
  Transmission Date: 20100710
  Serious: No
  Sender: FDA-Public Use
  Company Number: A0769124A

PATIENT
  Age: 26 Year
  Sex: Female

DRUGS (5)
  1. LAMICTAL CD [Suspect]
     Indication: DRUG USE FOR UNKNOWN INDICATION
     Dosage: 50MG PER DAY
     Route: 048
     Dates: start: 20090101
  2. XANAX [Concomitant]
  3. PERMETHRIN [Concomitant]
  4. IRON [Concomitant]
  5. LORTAB [Concomitant]

REACTIONS (4)
  - ABDOMINAL PAIN [None]
  - OROPHARYNGEAL BLISTERING [None]
  - RASH [None]
  - SWOLLEN TONGUE [None]
